FAERS Safety Report 4925147-2 (Version None)
Quarter: 2006Q1

REPORT INFORMATION
  Report Type: 
  Country: None (occurrence: None)
  Receive Date: 20060228
  Receipt Date: 20051202
  Transmission Date: 20060701
  Serious: No
  Sender: FDA-Public Use
  Company Number: US-GLAXOSMITHKLINE-A0584478A

PATIENT
  Age: 71 Year
  Sex: Male

DRUGS (3)
  1. AVODART [Suspect]
     Indication: BENIGN PROSTATIC HYPERPLASIA
     Dosage: .5MG PER DAY
     Route: 048
  2. GROWTH HORMONE [Concomitant]
  3. TESTOSTERONE [Concomitant]

REACTIONS (4)
  - BLOOD TESTOSTERONE INCREASED [None]
  - DRUG ADMINISTRATION ERROR [None]
  - DYSGEUSIA [None]
  - LIBIDO DECREASED [None]
